FAERS Safety Report 8449652-X (Version None)
Quarter: 2012Q2

REPORT INFORMATION
  Report Type: 
  Country: None (occurrence: None)
  Receive Date: 20120620
  Receipt Date: 20120618
  Transmission Date: 20120825
  Serious: Yes (Death, Hospitalization)
  Sender: FDA-Public Use
  Company Number: IT-BRISTOL-MYERS SQUIBB COMPANY-16645442

PATIENT
  Age: 86 Year
  Sex: Female

DRUGS (7)
  1. METFORMIN HCL [Suspect]
     Indication: DIABETES MELLITUS
     Route: 048
     Dates: start: 20120523
  2. COUMADIN [Suspect]
     Indication: ATRIAL FIBRILLATION
     Dates: start: 20090101, end: 20120523
  3. CITALOPRAM [Concomitant]
     Route: 048
  4. BETAHISTINE [Concomitant]
     Dosage: 1 DF: 2 DOSAGE UNIT/ORALLY 8MG TABS
     Route: 048
  5. TELMISARTAN AND HYDROCHLOROTHIAZIDE [Concomitant]
  6. ESOMEPRAZOLE MAGNESIUM [Concomitant]
  7. LANOXIN [Concomitant]
     Indication: ATRIAL FIBRILLATION
     Dosage: TAB
     Route: 048

REACTIONS (3)
  - SUBDURAL HAEMORRHAGE [None]
  - FALL [None]
  - CEREBRAL HAEMORRHAGE [None]
